FAERS Safety Report 9378481 (Version 1)
Quarter: 2013Q3

REPORT INFORMATION
  Report Type: Spontaneous
  Country: ES (occurrence: ES)
  Receive Date: 20130702
  Receipt Date: 20130702
  Transmission Date: 20140515
  Serious: Yes (Hospitalization, Other)
  Sender: FDA-Public Use
  Company Number: ES-AMGEN-ESPSP2013043491

PATIENT
  Age: 69 Year
  Sex: Male

DRUGS (7)
  1. ENBREL [Suspect]
     Indication: PSORIASIS
     Dosage: 50 MG, UNK
     Route: 065
     Dates: start: 20130220, end: 20130409
  2. ADENURIC [Concomitant]
     Dosage: 80 MG, UNK
  3. BIOPLAK [Concomitant]
     Dosage: 125 MG, UNK
  4. FUROSEMIDE [Concomitant]
     Dosage: 40 MG, UNK
  5. LOSARTAN [Concomitant]
     Dosage: 50 MG, UNK
  6. OMEPRAZOLE [Concomitant]
     Dosage: 20 MG, UNK
  7. SIMVASTATIN [Concomitant]
     Dosage: 10 MG, UNK

REACTIONS (5)
  - Hepatic cyst [Recovered/Resolved]
  - Acquired diaphragmatic eventration [Unknown]
  - Pyrexia [Recovered/Resolved]
  - Asthenia [Unknown]
  - Insomnia [Unknown]
